FAERS Safety Report 6412740-3 (Version None)
Quarter: 2009Q4

REPORT INFORMATION
  Report Type: 
  Country: None (occurrence: None)
  Receive Date: 20091023
  Receipt Date: 20091014
  Transmission Date: 20100525
  Serious: Yes (Other)
  Sender: FDA-Public Use
  Company Number: CH-ABBOTT-09P-151-0602697-00

PATIENT
  Age: 32 Year
  Sex: Female

DRUGS (12)
  1. DEPAKENE [Suspect]
     Indication: BIPOLAR DISORDER
     Dates: end: 20080902
  2. METHADONE HYDROCHLORIDE [Suspect]
     Indication: MENTAL DISORDER
     Dates: start: 20050101
  3. METHADONE HYDROCHLORIDE [Suspect]
     Indication: ABNORMAL BEHAVIOUR
  4. METHADONE HYDROCHLORIDE [Suspect]
     Indication: DRUG ABUSE
  5. TEMESTA [Suspect]
     Indication: DRUG USE FOR UNKNOWN INDICATION
  6. COCAINE [Suspect]
     Indication: DRUG ABUSE
  7. DIAMORPHINE [Suspect]
     Indication: DRUG ABUSE
     Dates: start: 20040101, end: 20080101
  8. CITALOPRAM HYDROBROMIDE [Suspect]
     Indication: BIPOLAR DISORDER
     Dates: end: 20080902
  9. CITALOPRAM HYDROBROMIDE [Suspect]
     Indication: DEPRESSION
  10. ZYPREXA [Suspect]
     Indication: BIPOLAR DISORDER
     Dates: end: 20080902
  11. SEROQUEL [Suspect]
     Indication: BIPOLAR DISORDER
     Dates: end: 20080902
  12. ANTABUSE [Suspect]
     Indication: ALCOHOL USE
     Dates: end: 20080923

REACTIONS (1)
  - CAESAREAN SECTION [None]
